FAERS Safety Report 6709986-3 (Version None)
Quarter: 2010Q2

REPORT INFORMATION
  Report Type: 
  Country: None (occurrence: None)
  Receive Date: 20100504
  Receipt Date: 20100427
  Transmission Date: 20101027
  Serious: Yes (Hospitalization, Other)
  Sender: FDA-Public Use
  Company Number: US-ASTRAZENECA-2010SE19397

PATIENT
  Age: 80 Year
  Sex: Female

DRUGS (8)
  1. CRESTOR [Suspect]
     Route: 048
  2. ATENOLOL [Suspect]
  3. LISINOPRIL [Suspect]
  4. PLAVIX [Concomitant]
  5. LEVOTHYROXINE [Concomitant]
  6. FUROSEMIDE [Concomitant]
  7. ASPIRIN [Concomitant]
  8. VITAMIN TAB [Concomitant]

REACTIONS (3)
  - BREAST CANCER [None]
  - MYOCARDIAL INFARCTION [None]
  - STENT PLACEMENT [None]
